FAERS Safety Report 4805452-0 (Version None)
Quarter: 2005Q4

REPORT INFORMATION
  Report Type: 
  Country: None (occurrence: None)
  Receive Date: 20051018
  Receipt Date: 20051005
  Transmission Date: 20060501
  Serious: Yes (Other)
  Sender: FDA-Public Use
  Company Number: 12612

PATIENT
  Age: 40 Year
  Sex: Male

DRUGS (3)
  1. CODEINE [Suspect]
  2. MIDAZOLAM [Suspect]
  3. ALFENTANIL [Suspect]

REACTIONS (2)
  - IMPAIRED WORK ABILITY [None]
  - POLYSUBSTANCE ABUSE [None]
